FAERS Safety Report 12095085 (Version 1)
Quarter: 2016Q1

REPORT INFORMATION
  Report Type: Spontaneous
  Country: IT (occurrence: IT)
  Receive Date: 20160219
  Receipt Date: 20160219
  Transmission Date: 20160526
  Serious: Yes (Other)
  Sender: FDA-Public Use
  Company Number: IT-WATSON-2016-03231

PATIENT
  Age: 25 Year
  Sex: Male

DRUGS (7)
  1. INTERFERON ALFA NOS [Concomitant]
     Active Substance: INTERFERON ALFA-2A OR INTERFERON ALFA-2B
     Indication: BEHCET^S SYNDROME
     Dosage: 12 MIU IU (1.000.000S), 1/WEEK
     Route: 065
     Dates: start: 200003, end: 200010
  2. CYCLOSPORINE (UNKNOWN) [Suspect]
     Active Substance: CYCLOSPORINE
     Dosage: 5 MG/KG, DAILY
     Route: 065
     Dates: start: 200107, end: 200201
  3. PREDNISONE. [Concomitant]
     Active Substance: PREDNISONE
     Indication: BEHCET^S SYNDROME
     Dosage: 1 MG/KG, DAILY
     Route: 065
     Dates: start: 199902
  4. METHOTREXATE (METHOTREXATE SODIUM) [Suspect]
     Active Substance: METHOTREXATE SODIUM
     Dosage: 15 MG, 1/WEEK
     Route: 065
     Dates: start: 200003
  5. CYCLOSPORINE (UNKNOWN) [Suspect]
     Active Substance: CYCLOSPORINE
     Indication: BEHCET^S SYNDROME
     Dosage: 5 MG/KG, DAILY
     Route: 065
     Dates: start: 199902, end: 200002
  6. METHOTREXATE (METHOTREXATE SODIUM) [Suspect]
     Active Substance: METHOTREXATE SODIUM
     Indication: BEHCET^S SYNDROME
     Dosage: 20 MG, 1/WEEK
     Route: 065
  7. AZATHIOPRINE (UNKNOWN) [Suspect]
     Active Substance: AZATHIOPRINE
     Indication: BEHCET^S SYNDROME

REACTIONS (4)
  - Renal impairment [None]
  - Nephrolithiasis [Unknown]
  - Nephropathy toxic [Unknown]
  - Hepatic enzyme increased [Unknown]
